FAERS Safety Report 25159268 (Version 2)
Quarter: 2025Q2

REPORT INFORMATION
  Report Type: Other
  Country: GB (occurrence: GB)
  Receive Date: 20250404
  Receipt Date: 20250624
  Transmission Date: 20250717
  Serious: Yes (Other)
  Sender: CHIESI
  Company Number: None

PATIENT
  Sex: Male

DRUGS (2)
  1. FERRIPROX [Suspect]
     Active Substance: DEFERIPRONE
     Indication: Product used for unknown indication
     Dosage: 5 GRAM, QD
  2. FERRIPROX [Suspect]
     Active Substance: DEFERIPRONE
     Dosage: 5 GRAM, QD
     Dates: start: 202502

REACTIONS (1)
  - Serum ferritin increased [Unknown]
